FAERS Safety Report 23112259 (Version 1)
Quarter: 2023Q4

REPORT INFORMATION
  Report Type: Report from Study
  Country: US (occurrence: US)
  Receive Date: 20231026
  Receipt Date: 20231026
  Transmission Date: 20240110
  Serious: Yes (Hospitalization)
  Sender: FDA-Public Use
  Company Number: US-ABBVIE-5463123

PATIENT
  Age: 28 Year
  Sex: Male

DRUGS (1)
  1. CREON [Suspect]
     Active Substance: PANCRELIPASE AMYLASE\PANCRELIPASE LIPASE\PANCRELIPASE PROTEASE
     Indication: Pancreatic failure
     Dosage: FREQUENCY TEXT: 5 PILLS, 3 TIMES A DAY
     Route: 048
     Dates: start: 2020

REACTIONS (4)
  - Hernia [Recovering/Resolving]
  - Cholecystectomy [Unknown]
  - Pancreatectomy [Unknown]
  - Splenectomy [Unknown]

NARRATIVE: CASE EVENT DATE: 20230801
